FAERS Safety Report 7756694-6 (Version None)
Quarter: 2011Q3

REPORT INFORMATION
  Report Type: 
  Country: None (occurrence: None)
  Receive Date: 20110916
  Receipt Date: 20110909
  Transmission Date: 20111222
  Serious: Yes (Death)
  Sender: FDA-Public Use
  Company Number: US-CELGENEUS-163-21880-11063762

PATIENT
  Sex: Male
  Weight: 68.554 kg

DRUGS (11)
  1. METOPROLOL TARTRATE [Concomitant]
     Route: 065
  2. PREVACID [Concomitant]
     Route: 065
  3. PERCOCET [Concomitant]
     Route: 065
  4. OXYCODONE HCL [Concomitant]
     Route: 065
  5. DEXAMETHASONE [Concomitant]
     Route: 065
  6. DURAGESIC-100 [Concomitant]
     Route: 065
  7. LISINOPRIL [Concomitant]
     Route: 065
  8. ZOMETA [Concomitant]
     Dosage: 3 MILLIGRAM
     Route: 041
     Dates: start: 20110603, end: 20110708
  9. REVLIMID [Suspect]
     Indication: MULTIPLE MYELOMA
     Dosage: 10 MILLIGRAM
     Route: 048
     Dates: start: 20110527, end: 20110821
  10. ALLOPURINOL [Concomitant]
     Route: 065
  11. VELCADE [Concomitant]
     Indication: MULTIPLE MYELOMA
     Dosage: 1.8 MILLIGRAM
     Route: 041
     Dates: start: 20110701, end: 20110708

REACTIONS (4)
  - DEHYDRATION [None]
  - PAIN [None]
  - DEATH [None]
  - DECREASED APPETITE [None]
